FAERS Safety Report 7201267-7 (Version None)
Quarter: 2010Q4

REPORT INFORMATION
  Report Type: 
  Country: None (occurrence: None)
  Receive Date: 20101215
  Receipt Date: 20101201
  Transmission Date: 20110411
  Serious: Yes (Death)
  Sender: FDA-Public Use
  Company Number: ES-2010-2706

PATIENT
  Sex: Male
  Weight: 81 kg

DRUGS (9)
  1. NAVELBINE [Suspect]
     Indication: LUNG NEOPLASM MALIGNANT
     Dosage: 59 MG IV
     Route: 042
     Dates: start: 20100817, end: 20101102
  2. ZOLEDRONATE [Concomitant]
  3. ACETAMINOPHEN [Concomitant]
  4. AMLODIPINE [Concomitant]
  5. OMEPRAZOLE [Concomitant]
  6. ADIRO [Concomitant]
  7. CARDIOVAS [Concomitant]
  8. BISOPROLOL [Concomitant]
  9. ATOVASTATIN [Concomitant]

REACTIONS (2)
  - INTERSTITIAL LUNG DISEASE [None]
  - PULMONARY FIBROSIS [None]
